FAERS Safety Report 7132461-1 (Version None)
Quarter: 2010Q4

REPORT INFORMATION
  Report Type: 
  Country: None (occurrence: None)
  Receive Date: 20101202
  Receipt Date: 20101121
  Transmission Date: 20110411
  Serious: Yes (Other)
  Sender: FDA-Public Use
  Company Number: US-JNJCH-2010027308

PATIENT
  Age: 59 Year
  Sex: Female
  Weight: 90.7 kg

DRUGS (4)
  1. LISTERINE WHITENING QUICK DISSOLVING STRIPS [Suspect]
     Indication: DENTAL CARE
     Dosage: TEXT:TWO STRIPS ONCE A DAY
     Route: 048
     Dates: start: 20101117, end: 20101119
  2. PRAVASTATIN [Concomitant]
     Indication: BLOOD CHOLESTEROL
     Dosage: TEXT:20MG A DAY
     Route: 065
  3. VERAPAMIL [Concomitant]
     Indication: BLOOD PRESSURE
     Dosage: TEXT:120MG TWICE A DAY
     Route: 065
  4. ACETYLSALICYLIC ACID [Concomitant]
     Indication: CARDIAC DISORDER
     Dosage: TEXT:ONE A DAY
     Route: 065

REACTIONS (5)
  - APPLICATION SITE PAIN [None]
  - BLISTER [None]
  - ORAL DISORDER [None]
  - ORAL PAIN [None]
  - PRODUCT QUALITY ISSUE [None]
